FAERS Safety Report 6126280-2 (Version None)
Quarter: 2009Q1

REPORT INFORMATION
  Report Type: 
  Country: None (occurrence: None)
  Receive Date: 20090320
  Receipt Date: 20090309
  Transmission Date: 20090719
  Serious: Yes (Hospitalization, Other)
  Sender: FDA-Public Use
  Company Number: BR-ROCHE-615779

PATIENT
  Sex: Female
  Weight: 39.6 kg

DRUGS (13)
  1. RIVOTRIL [Suspect]
     Indication: ANXIETY
     Dosage: HALF TABLET IN MORNING AND HALF TABLET AT NIGHT;OTHER INDICATION: DEPRESSION AND INSOMNIA
     Route: 048
     Dates: start: 19890101, end: 20030101
  2. RIVOTRIL [Suspect]
     Dosage: HALF TABLET IN MORNING AND ONE TABLET AT NIGHT
     Route: 048
     Dates: start: 20030101
  3. ALENDRONIC ACID [Suspect]
     Indication: OSTEOPOROSIS
     Dosage: DRUG :ALENDRONATE
     Route: 065
  4. ANXIOLYTIC NOS [Suspect]
     Indication: DRUG USE FOR UNKNOWN INDICATION
     Route: 065
  5. DICETEL [Suspect]
     Indication: CONSTIPATION
     Dosage: START DATE : 2009 AND STOP DATE: 2009
     Route: 048
  6. OMEPRAZOLE [Concomitant]
     Indication: GASTRITIS
     Route: 048
  7. GINKGO BILOBA [Concomitant]
     Dosage: ONE CAPSULE/DAY DURING 2 YEARS
     Route: 048
  8. VERTIX [Concomitant]
     Dosage: FREQUENCY: TAKEN SOMETIMES
  9. OLCADIL [Concomitant]
     Indication: DEPRESSION
  10. LABIRIN [Concomitant]
     Indication: DIZZINESS
     Route: 048
     Dates: end: 20090308
  11. HALDOL [Concomitant]
     Indication: DEPRESSION
     Dates: start: 20030101, end: 20030101
  12. SERTRALINE [Concomitant]
     Indication: DEPRESSION
     Route: 048
  13. FLUOXETINE [Concomitant]
     Indication: DEPRESSION
     Route: 048

REACTIONS (33)
  - ABDOMINAL PAIN UPPER [None]
  - AGGRESSION [None]
  - AMNESIA [None]
  - CONSTIPATION [None]
  - DEPRESSION [None]
  - DIARRHOEA [None]
  - DIZZINESS [None]
  - DRUG DEPENDENCE [None]
  - DRUG INEFFECTIVE [None]
  - DYSPNOEA [None]
  - FATIGUE [None]
  - FEELING OF DESPAIR [None]
  - GASTRITIS [None]
  - GASTROINTESTINAL PAIN [None]
  - HAEMANGIOMA [None]
  - HEADACHE [None]
  - INSOMNIA [None]
  - LIVER DISORDER [None]
  - MEMORY IMPAIRMENT [None]
  - MUSCULAR WEAKNESS [None]
  - NERVOUSNESS [None]
  - NO THERAPEUTIC RESPONSE [None]
  - OSTEOPOROSIS [None]
  - PALPITATIONS [None]
  - PANIC ATTACK [None]
  - RESTLESS LEGS SYNDROME [None]
  - RETCHING [None]
  - SCOLIOSIS [None]
  - SUICIDAL IDEATION [None]
  - TINNITUS [None]
  - VISION BLURRED [None]
  - VOMITING [None]
  - WITHDRAWAL SYNDROME [None]
